FAERS Safety Report 8674540 (Version 2)
Quarter: 2013Q4

REPORT INFORMATION
  Report Type: Spontaneous
  Country: JP (occurrence: JP)
  Receive Date: 20120720
  Receipt Date: 20131031
  Transmission Date: 20140711
  Serious: Yes (Other)
  Sender: FDA-Public Use
  Company Number: JP-009507513-2012SP031784

PATIENT
  Sex: Female

DRUGS (1)
  1. FARESTON [Suspect]
     Indication: BREAST CANCER
     Dosage: 120 MG, QD
     Route: 048
     Dates: start: 2011

REACTIONS (2)
  - Respiratory failure [Not Recovered/Not Resolved]
  - Hepatic function abnormal [Not Recovered/Not Resolved]
